FAERS Safety Report 20127595 (Version 1)
Quarter: 2021Q4

REPORT INFORMATION
  Report Type: Spontaneous
  Country: US (occurrence: None)
  Receive Date: 20211129
  Receipt Date: 20211129
  Transmission Date: 20220303
  Serious: Yes (Hospitalization)
  Sender: FDA-Public Use
  Company Number: None

PATIENT
  Age: 48 Year
  Sex: Male
  Weight: 155.5 kg

DRUGS (11)
  1. CASIRIVIMAB\IMDEVIMAB [Suspect]
     Active Substance: CASIRIVIMAB\IMDEVIMAB
     Indication: COVID-19
     Route: 042
     Dates: start: 20211123, end: 20211123
  2. FLUTICASONE [Concomitant]
     Active Substance: FLUTICASONE
  3. TACROLIMUS [Concomitant]
     Active Substance: TACROLIMUS
  4. METOPROLOL [Concomitant]
     Active Substance: METOPROLOL
  5. GEMFIBROZIL [Concomitant]
     Active Substance: GEMFIBROZIL
  6. LISINOPRIL [Concomitant]
     Active Substance: LISINOPRIL
  7. EMPAGLIFLOZIN [Concomitant]
     Active Substance: EMPAGLIFLOZIN
  8. INSULIN NOS [Concomitant]
     Active Substance: INSULIN NOS
  9. OMEPRAZOLE [Concomitant]
     Active Substance: OMEPRAZOLE
  10. CHOLECALCIFEROL [Concomitant]
     Active Substance: CHOLECALCIFEROL
  11. VITAMIN E [Concomitant]
     Active Substance: .ALPHA.-TOCOPHEROL

REACTIONS (3)
  - Splenic vein thrombosis [None]
  - Splenic infarction [None]
  - Splenic artery aneurysm [None]

NARRATIVE: CASE EVENT DATE: 20211124
